FAERS Safety Report 25412122 (Version 2)
Quarter: 2025Q2

REPORT INFORMATION
  Report Type: Spontaneous
  Country: EG (occurrence: EG)
  Receive Date: 20250609
  Receipt Date: 20250618
  Transmission Date: 20250717
  Serious: Yes (Other)
  Sender: RANBAXY
  Company Number: EG-SUN PHARMACEUTICAL INDUSTRIES INC-2025RR-511267

PATIENT
  Age: 48 Year
  Sex: Male

DRUGS (3)
  1. PAROXETINE [Suspect]
     Active Substance: PAROXETINE
     Indication: Panic attack
     Route: 065
  2. VALPROIC ACID [Suspect]
     Active Substance: VALPROIC ACID
     Indication: Panic attack
     Route: 065
  3. BUSPIRONE [Suspect]
     Active Substance: BUSPIRONE HYDROCHLORIDE
     Indication: Panic attack
     Route: 065

REACTIONS (3)
  - Disease progression [Unknown]
  - Aggression [Unknown]
  - Suicidal ideation [Unknown]
